FAERS Safety Report 15030403 (Version 1)
Quarter: 2018Q2

REPORT INFORMATION
  Report Type: Spontaneous
  Country: CL (occurrence: CL)
  Receive Date: 20180619
  Receipt Date: 20180619
  Transmission Date: 20180711
  Serious: Yes (Hospitalization)
  Sender: FDA-Public Use
  Company Number: CL-US WORLDMEDS, LLC-STA_00019278

PATIENT
  Age: 69 Year
  Sex: Female

DRUGS (1)
  1. APOMORPHINE HYDROCHLORIDE [Suspect]
     Active Substance: APOMORPHINE HYDROCHLORIDE
     Indication: PARKINSON^S DISEASE
     Route: 058

REACTIONS (15)
  - Reduced facial expression [Unknown]
  - Affective disorder [Unknown]
  - Anxiety [Unknown]
  - Hypotonia [Unknown]
  - Initial insomnia [Unknown]
  - Hyperhidrosis [Unknown]
  - Withdrawal syndrome [Unknown]
  - Drug effect decreased [Unknown]
  - Injection site haemorrhage [Unknown]
  - Weight decreased [Unknown]
  - Drug dependence [Unknown]
  - Respiratory disorder [Unknown]
  - Bradykinesia [Unknown]
  - Injection site infection [Unknown]
  - Tremor [Unknown]
